FAERS Safety Report 15386201 (Version 1)
Quarter: 2018Q3

REPORT INFORMATION
  Report Type: Spontaneous
  Country: US (occurrence: US)
  Receive Date: 20180914
  Receipt Date: 20180914
  Transmission Date: 20181010
  Serious: Yes (Other)
  Sender: FDA-Public Use
  Company Number: US-TEVA-2018-US-954356

PATIENT

DRUGS (2)
  1. ACTIQ [Suspect]
     Active Substance: FENTANYL CITRATE
     Indication: PRODUCT USED FOR UNKNOWN INDICATION
     Route: 065
  2. FENTORA [Suspect]
     Active Substance: FENTANYL CITRATE
     Route: 065

REACTIONS (6)
  - Drug withdrawal syndrome neonatal [Unknown]
  - Crying [Unknown]
  - Foetal exposure during pregnancy [Unknown]
  - Feeding disorder [Unknown]
  - Opisthotonus [Unknown]
  - Tremor [Unknown]
